FAERS Safety Report 8419963-2 (Version None)
Quarter: 2012Q2

REPORT INFORMATION
  Report Type: 
  Country: None (occurrence: None)
  Receive Date: 20120607
  Receipt Date: 20120601
  Transmission Date: 20120825
  Serious: Yes (Hospitalization)
  Sender: FDA-Public Use
  Company Number: DE-BAXTER-2012BAX006516

PATIENT
  Sex: Male
  Weight: 76 kg

DRUGS (4)
  1. CYCLOPHOSPHAMIDE [Suspect]
     Route: 042
     Dates: start: 20120119
  2. PREDNISONE TAB [Suspect]
     Route: 048
     Dates: start: 20120118
  3. DOXORUBICIN HCL [Suspect]
     Route: 042
     Dates: start: 20120119
  4. VINCRISTINE [Suspect]
     Route: 042
     Dates: start: 20120119

REACTIONS (4)
  - GASTRITIS [None]
  - FEBRILE NEUTROPENIA [None]
  - ANAEMIA [None]
  - PNEUMONIA [None]
